FAERS Safety Report 19471188 (Version 1)
Quarter: 2021Q2

REPORT INFORMATION
  Report Type: Spontaneous
  Country: US (occurrence: US)
  Receive Date: 20210628
  Receipt Date: 20210628
  Transmission Date: 20210717
  Serious: Yes (Other)
  Sender: FDA-Public Use
  Company Number: None

PATIENT
  Age: 83 Year
  Sex: Female
  Weight: 58.5 kg

DRUGS (12)
  1. FEXOFENADINE [Concomitant]
     Active Substance: FEXOFENADINE HYDROCHLORIDE
  2. GABAPENTIN. [Concomitant]
     Active Substance: GABAPENTIN
  3. K+ [Concomitant]
     Active Substance: POTASSIUM
  4. BENADRYL [Concomitant]
     Active Substance: DIPHENHYDRAMINE HYDROCHLORIDE
  5. HYDROXYZINE [Concomitant]
     Active Substance: HYDROXYZINE HYDROCHLORIDE
  6. IBUPROFEN. [Concomitant]
     Active Substance: IBUPROFEN
  7. STEROID DOSEPAK [Concomitant]
  8. DUPIXENT [Suspect]
     Active Substance: DUPILUMAB
     Indication: DERMATITIS ATOPIC
     Dosage: ?          QUANTITY:2 INJECTION(S);OTHER FREQUENCY:BIWEEKLY;?
     Route: 058
     Dates: start: 20210612, end: 20210613
  9. LASIX [Concomitant]
     Active Substance: FUROSEMIDE
  10. ATENOLOL. [Concomitant]
     Active Substance: ATENOLOL
  11. CALCIUM+D+MINERALS [Concomitant]
  12. ACETOMINOPHEN [Concomitant]
     Active Substance: ACETAMINOPHEN

REACTIONS (5)
  - Pruritus [None]
  - Rash erythematous [None]
  - Peripheral swelling [None]
  - Insomnia [None]
  - Blood pressure decreased [None]

NARRATIVE: CASE EVENT DATE: 20210613
